FAERS Safety Report 17842306 (Version 3)
Quarter: 2020Q3

REPORT INFORMATION
  Report Type: Spontaneous
  Country: US (occurrence: US)
  Receive Date: 20200529
  Receipt Date: 20200813
  Transmission Date: 20201103
  Serious: No
  Sender: FDA-Public Use
  Company Number: US-009507513-2005USA005778

PATIENT
  Age: 65 Year
  Sex: Female
  Weight: 49.89 kg

DRUGS (8)
  1. HORMONAL CONTRACEPTIVES (UNSPECIFIED) [Concomitant]
     Active Substance: UNSPECIFIED INGREDIENT
     Dosage: UNK
  2. REMERON [Suspect]
     Active Substance: MIRTAZAPINE
     Indication: DEPRESSION
  3. MIRTAZAPINE. [Suspect]
     Active Substance: MIRTAZAPINE
     Indication: DEPRESSION
     Dosage: UNK
     Route: 048
     Dates: start: 2005, end: 2005
  4. XANAX [Concomitant]
     Active Substance: ALPRAZOLAM
     Dosage: UNK
  5. REMERON [Suspect]
     Active Substance: MIRTAZAPINE
     Indication: ANXIETY
     Dosage: 1 1/2 TABLETS AT BEDTIME
     Route: 048
     Dates: start: 20200609
  6. MIRTAZAPINE. [Suspect]
     Active Substance: MIRTAZAPINE
     Indication: ANXIETY
  7. ALPRAZOLAM. [Concomitant]
     Active Substance: ALPRAZOLAM
     Dosage: UNK
  8. LEVOTHYROXINE SODIUM. [Concomitant]
     Active Substance: LEVOTHYROXINE SODIUM
     Dosage: UNK

REACTIONS (8)
  - Nightmare [Not Recovered/Not Resolved]
  - Agitation [Unknown]
  - Agitation [Unknown]
  - Wrong technique in product usage process [Unknown]
  - Drug effective for unapproved indication [Unknown]
  - Product use in unapproved indication [Unknown]
  - Poor quality sleep [Unknown]
  - Anxiety [Unknown]

NARRATIVE: CASE EVENT DATE: 2005
